FAERS Safety Report 7927394-4 (Version None)
Quarter: 2011Q4

REPORT INFORMATION
  Report Type: 
  Country: None (occurrence: None)
  Receive Date: 20111118
  Receipt Date: 20111115
  Transmission Date: 20120403
  Serious: Yes (Death, Hospitalization)
  Sender: FDA-Public Use
  Company Number: PHEH2011US08527

PATIENT
  Sex: Male

DRUGS (2)
  1. EXJADE [Suspect]
     Indication: MYELOFIBROSIS
     Dosage: 1125 MG, QD
     Route: 048
  2. EXJADE [Suspect]
     Indication: SERUM FERRITIN INCREASED

REACTIONS (6)
  - GENERAL PHYSICAL HEALTH DETERIORATION [None]
  - NEOPLASM MALIGNANT [None]
  - ASTHENIA [None]
  - NEOPLASM PROGRESSION [None]
  - DIARRHOEA [None]
  - FAECAL INCONTINENCE [None]
